FAERS Safety Report 4810082-0 (Version None)
Quarter: 2005Q4

REPORT INFORMATION
  Report Type: 
  Country: None (occurrence: None)
  Receive Date: 20051024
  Receipt Date: 20051011
  Transmission Date: 20060501
  Serious: Yes (Hospitalization)
  Sender: FDA-Public Use
  Company Number: 2005141291

PATIENT
  Age: 48 Year
  Sex: Female

DRUGS (2)
  1. CLINDAMYCIN HYDROCHLORIDE [Suspect]
     Indication: HYSTERECTOMY
     Dosage: 900 MG (300 MG, 3 IN 1 D), ORAL
     Route: 048
  2. CLINDAMYCIN HYDROCHLORIDE [Concomitant]

REACTIONS (2)
  - DYSPHAGIA [None]
  - GASTRITIS [None]
